FAERS Safety Report 9643873 (Version 1)
Quarter: 2013Q4

REPORT INFORMATION
  Report Type: Spontaneous
  Country: US (occurrence: US)
  Receive Date: 20131024
  Receipt Date: 20131024
  Transmission Date: 20140711
  Serious: No
  Sender: FDA-Public Use
  Company Number: US-ASTRAZENECA-2013SE74621

PATIENT
  Age: 82 Year
  Sex: Female
  Weight: 44.5 kg

DRUGS (10)
  1. LISINOPRIL [Suspect]
     Route: 048
  2. TOPROL XL [Suspect]
     Route: 048
  3. TOPROL XL [Suspect]
     Route: 048
  4. CRESTOR [Suspect]
     Route: 048
     Dates: start: 20130805
  5. BRILINTA [Suspect]
     Indication: STENT PLACEMENT
     Route: 048
     Dates: start: 20130805
  6. NITRO [Concomitant]
  7. AMLOPIDIPINE [Concomitant]
     Indication: BLOOD PRESSURE ABNORMAL
  8. ASPIRIN [Concomitant]
  9. PREDNISONE [Concomitant]
  10. HEPARIN [Concomitant]

REACTIONS (5)
  - White blood cell count increased [Unknown]
  - Red blood cell count increased [Unknown]
  - Dyspnoea [Unknown]
  - Haemoglobin decreased [Unknown]
  - Hepatic enzyme increased [Unknown]
